APPROVED DRUG PRODUCT: HISTAFED
Active Ingredient: PSEUDOEPHEDRINE HYDROCHLORIDE; TRIPROLIDINE HYDROCHLORIDE
Strength: 30MG/5ML;1.25MG/5ML
Dosage Form/Route: SYRUP;ORAL
Application: A088283 | Product #001
Applicant: HR CENCI LABORATORIES INC
Approved: Apr 20, 1984 | RLD: No | RS: No | Type: DISCN